FAERS Safety Report 5521220-9 (Version None)
Quarter: 2007Q4

REPORT INFORMATION
  Report Type: 
  Country: None (occurrence: None)
  Receive Date: 20071119
  Receipt Date: 20071108
  Transmission Date: 20080405
  Serious: Yes (Other)
  Sender: FDA-Public Use
  Company Number: JP-ASTRAZENECA-2007AP07173

PATIENT
  Age: 45 Year
  Sex: Male

DRUGS (1)
  1. LIDOCAINE INJECTION WITH EPINEPHRINE [Suspect]
     Indication: ANAESTHESIA PROCEDURE
     Route: 053

REACTIONS (3)
  - CONVULSION [None]
  - DRUG TOXICITY [None]
  - LOSS OF CONSCIOUSNESS [None]
